FAERS Safety Report 25120371 (Version 2)
Quarter: 2025Q2

REPORT INFORMATION
  Report Type: Report from Study
  Country: AU (occurrence: AU)
  Receive Date: 20250325
  Receipt Date: 20250402
  Transmission Date: 20250717
  Serious: Yes (Death, Other)
  Sender: TAKEDA
  Company Number: AU-TAKEDA-2025TUS030400

PATIENT
  Sex: Female

DRUGS (1)
  1. FRUQUINTINIB [Suspect]
     Active Substance: FRUQUINTINIB
     Indication: Colorectal cancer metastatic

REACTIONS (1)
  - Colorectal cancer metastatic [Fatal]
